FAERS Safety Report 7764291-1 (Version None)
Quarter: 2011Q3

REPORT INFORMATION
  Report Type: 
  Country: None (occurrence: None)
  Receive Date: 20110921
  Receipt Date: 20110914
  Transmission Date: 20111222
  Serious: Yes (Hospitalization)
  Sender: FDA-Public Use
  Company Number: US-B.I. PHARMACEUTICALS,INC./RIDGEFIELD-2011-BP-19382BP

PATIENT
  Age: 62 Year
  Sex: Female
  Weight: 72.7 kg

DRUGS (7)
  1. PRADAXA [Suspect]
     Indication: ATRIAL FIBRILLATION
     Dosage: 300 MG
  2. LOVASTATIN [Concomitant]
     Dosage: 20 MG
     Dates: start: 20090722
  3. PRADAXA [Suspect]
     Dosage: 150 MG
     Dates: start: 20110822
  4. METOPROLOL TARTRATE [Concomitant]
     Dosage: 50 MG
     Dates: start: 20090722
  5. FLUOXETINE [Concomitant]
     Dosage: 10 MG
     Dates: start: 20090722
  6. CALCIUM CARBONATE [Concomitant]
     Dates: start: 20090722
  7. ASPIRIN [Concomitant]
     Dosage: 81 MG
     Dates: start: 20090722

REACTIONS (1)
  - GASTROINTESTINAL HAEMORRHAGE [None]
